FAERS Safety Report 21260963 (Version 4)
Quarter: 2024Q3

REPORT INFORMATION
  Report Type: Spontaneous
  Country: AR (occurrence: AR)
  Receive Date: 20220826
  Receipt Date: 20240827
  Transmission Date: 20241016
  Serious: Yes (Other)
  Sender: BIOMARIN
  Company Number: AR-BIOMARINAP-AR-2022-145157

PATIENT

DRUGS (1)
  1. VIMIZIM [Suspect]
     Active Substance: ELOSULFASE ALFA
     Indication: Mucopolysaccharidosis IV
     Dosage: 2 MILLIGRAM/KILOGRAM, QW
     Route: 042
     Dates: start: 20141030

REACTIONS (10)
  - Spinal cord compression [Recovering/Resolving]
  - Spinal deformity [Recovering/Resolving]
  - Foramen magnum stenosis [Recovering/Resolving]
  - Myelopathy [Recovering/Resolving]
  - Paraplegia [Recovering/Resolving]
  - Dysstasia [Recovering/Resolving]
  - Paraparesis [Recovering/Resolving]
  - Gait disturbance [Recovering/Resolving]
  - Pain in extremity [Recovering/Resolving]
  - Muscle contracture [Recovering/Resolving]

NARRATIVE: CASE EVENT DATE: 20190101
